FAERS Safety Report 6752466-X (Version None)
Quarter: 2010Q2

REPORT INFORMATION
  Report Type: 
  Country: None (occurrence: None)
  Receive Date: 20100601
  Receipt Date: 20100601
  Transmission Date: 20101027
  Serious: No
  Sender: FDA-Public Use
  Company Number: None

PATIENT
  Age: 42 Year
  Sex: Female

DRUGS (1)
  1. VANCOMYCIN [Suspect]
     Indication: ABSCESS
     Dosage: 1 G/250 ML IV
     Route: 042

REACTIONS (3)
  - ANXIETY [None]
  - GENERALISED ERYTHEMA [None]
  - PRURITUS GENERALISED [None]
